FAERS Safety Report 5451741-9 (Version None)
Quarter: 2007Q3

REPORT INFORMATION
  Report Type: 
  Country: None (occurrence: None)
  Receive Date: 20070913
  Receipt Date: 20070904
  Transmission Date: 20080115
  Serious: Yes (Death)
  Sender: FDA-Public Use
  Company Number: FR-PFIZER INC-2007074148

PATIENT
  Sex: Male

DRUGS (3)
  1. VFEND [Suspect]
     Indication: RESPIRATORY TRACT INFECTION
  2. TRIFLUCAN [Suspect]
     Indication: RESPIRATORY TRACT INFECTION
  3. ALL OTHER THERAPEUTIC PRODUCTS [Concomitant]

REACTIONS (1)
  - DEATH [None]
